FAERS Safety Report 12394118 (Version 2)
Quarter: 2016Q2

REPORT INFORMATION
  Report Type: Spontaneous
  Country: AU (occurrence: AU)
  Receive Date: 20160523
  Receipt Date: 20160605
  Transmission Date: 20160815
  Serious: Yes (Other)
  Sender: FDA-Public Use
  Company Number: AU-PFIZER INC-2016261210

PATIENT
  Sex: Male

DRUGS (1)
  1. VIAGRA [Suspect]
     Active Substance: SILDENAFIL CITRATE
     Dosage: 100 MG

REACTIONS (8)
  - Post-traumatic stress disorder [Unknown]
  - Incorrect dose administered [Unknown]
  - Drug ineffective [Unknown]
  - Ejaculation failure [Unknown]
  - Testicular swelling [Unknown]
  - Testicular pain [Unknown]
  - Initial insomnia [Unknown]
  - Blood pressure increased [Unknown]
